FAERS Safety Report 7638536-2 (Version None)
Quarter: 2011Q3

REPORT INFORMATION
  Report Type: 
  Country: None (occurrence: None)
  Receive Date: 20110727
  Receipt Date: 20110726
  Transmission Date: 20111222
  Serious: Yes (Life-Threatening, Hospitalization, Disabling, Other)
  Sender: FDA-Public Use
  Company Number: PHFR2010GB04255

PATIENT
  Sex: Male

DRUGS (3)
  1. CLOZAPINE [Suspect]
     Indication: SCHIZOPHRENIA
     Route: 048
     Dates: start: 19990830, end: 20050411
  2. CLOZAPINE [Suspect]
     Dosage: 350 MG
     Route: 048
     Dates: end: 20100927
  3. CLOZAPINE [Suspect]
     Dosage: 350 MG
     Route: 048
     Dates: start: 20100510, end: 20101026

REACTIONS (2)
  - IMMUNODEFICIENCY [None]
  - MENINGITIS TUBERCULOUS [None]
